FAERS Safety Report 5285246-5 (Version None)
Quarter: 2007Q1

REPORT INFORMATION
  Report Type: 
  Country: None (occurrence: None)
  Receive Date: 20070328
  Receipt Date: 20070315
  Transmission Date: 20070707
  Serious: Yes (Life-Threatening)
  Sender: FDA-Public Use
  Company Number: 2006US002888

PATIENT
  Age: 71 Year
  Sex: Male

DRUGS (4)
  1. AMBISOME [Suspect]
     Indication: FUNGAL INFECTION
     Dosage: 88 MG TOTAL DOSE
     Dates: start: 20061116, end: 20061125
  2. MAXIPIME [Suspect]
     Dosage: 2 G, TOTAL DOSE, IV NOS
     Route: 042
     Dates: start: 20061021, end: 20061124
  3. CLINDAMYCIN [Suspect]
     Dosage: 1200 MG, TOTAL DOSE,
     Dates: start: 20061003, end: 20061124
  4. ZYVOX [Suspect]
     Dosage: 1200 MG, TOTAL DOSE
     Dates: start: 20061113, end: 20061124

REACTIONS (2)
  - ANOREXIA [None]
  - INTERSTITIAL LUNG DISEASE [None]
